FAERS Safety Report 25223669 (Version 2)
Quarter: 2025Q2

REPORT INFORMATION
  Report Type: Report from Study
  Country: US (occurrence: US)
  Receive Date: 20250422
  Receipt Date: 20250625
  Transmission Date: 20250717
  Serious: Yes (Other)
  Sender: NOVARTIS
  Company Number: US-002147023-NVSC2025US045142

PATIENT
  Sex: Male

DRUGS (1)
  1. KESIMPTA [Suspect]
     Active Substance: OFATUMUMAB
     Indication: Product used for unknown indication
     Route: 065

REACTIONS (6)
  - Multiple sclerosis [Unknown]
  - Headache [Unknown]
  - Paraesthesia [Unknown]
  - Migraine [Unknown]
  - Burning sensation [Unknown]
  - Malaise [Unknown]
